FAERS Safety Report 21619163 (Version 2)
Quarter: 2022Q4

REPORT INFORMATION
  Report Type: Report from Study
  Country: CA (occurrence: CA)
  Receive Date: 20221120
  Receipt Date: 20221206
  Transmission Date: 20230113
  Serious: Yes (Hospitalization, Other)
  Sender: FDA-Public Use
  Company Number: CA-ABBVIE-22K-028-4438227-00

PATIENT
  Sex: Female

DRUGS (2)
  1. SKYRIZI [Suspect]
     Active Substance: RISANKIZUMAB-RZAA
     Indication: Psoriasis
     Dosage: 75 MILLIGRAM
     Route: 058
     Dates: start: 20211213
  2. SKYRIZI [Suspect]
     Active Substance: RISANKIZUMAB-RZAA
     Dosage: FORM STRENGTH: 75 MILLIGRAM
     Route: 058

REACTIONS (10)
  - Intestinal obstruction [Not Recovered/Not Resolved]
  - Upper limb fracture [Unknown]
  - Upper limb fracture [Unknown]
  - Humerus fracture [Unknown]
  - Fall [Unknown]
  - Intestinal obstruction [Not Recovered/Not Resolved]
  - Facial bones fracture [Unknown]
  - Constipation [Unknown]
  - Urinary tract infection [Unknown]
  - Intestinal mass [Not Recovered/Not Resolved]
